FAERS Safety Report 9199195 (Version 1)
Quarter: 2013Q1

REPORT INFORMATION
  Report Type: Spontaneous
  Country: US (occurrence: US)
  Receive Date: 20130329
  Receipt Date: 20130329
  Transmission Date: 20140127
  Serious: No
  Sender: FDA-Public Use
  Company Number: US-PFIZER INC-2013098688

PATIENT
  Sex: 0

DRUGS (1)
  1. PIROXICAM [Suspect]
     Indication: ARTHRITIS
     Dosage: UNK

REACTIONS (3)
  - Diarrhoea [Unknown]
  - Dyspepsia [Unknown]
  - Drug ineffective [Unknown]
